FAERS Safety Report 4611069-3 (Version None)
Quarter: 2005Q1

REPORT INFORMATION
  Report Type: 
  Country: None (occurrence: None)
  Receive Date: 20050316
  Receipt Date: 20050316
  Transmission Date: 20050727
  Serious: Yes (Hospitalization)
  Sender: FDA-Public Use
  Company Number: None

PATIENT
  Age: 43 Year
  Sex: Male
  Weight: 75.2971 kg

DRUGS (2)
  1. COCAINE;;;NASAL AND THROAT AGENTS, TOPICAL;;; [Suspect]
     Indication: DRUG ABUSER
  2. CATAPRES-TTS-1 [Suspect]
     Indication: HYPERTENSION
     Dosage: 0.6 MG/24H  Q7D

REACTIONS (2)
  - BLOOD PRESSURE INCREASED [None]
  - HEADACHE [None]
